FAERS Safety Report 6814971-7 (Version None)
Quarter: 2010Q3

REPORT INFORMATION
  Report Type: 
  Country: None (occurrence: None)
  Receive Date: 20100702
  Receipt Date: 20100628
  Transmission Date: 20110219
  Serious: Yes (Other)
  Sender: FDA-Public Use
  Company Number: HU-ROCHE-712452

PATIENT
  Sex: Female
  Weight: 2.2 kg

DRUGS (1)
  1. CEFTRIAXONE SODIUM [Suspect]
     Route: 064

REACTIONS (2)
  - MATERNAL DRUGS AFFECTING FOETUS [None]
  - SMALL FOR DATES BABY [None]
